FAERS Safety Report 19873978 (Version 1)
Quarter: 2021Q3

REPORT INFORMATION
  Report Type: Spontaneous
  Country: US (occurrence: US)
  Receive Date: 20210923
  Receipt Date: 20210923
  Transmission Date: 20211014
  Serious: No
  Sender: FDA-Public Use
  Company Number: US-PFIZER INC-2021263724

PATIENT
  Age: 67 Year
  Sex: Female

DRUGS (1)
  1. TAPAZOLE [Suspect]
     Active Substance: METHIMAZOLE
     Dosage: UNK

REACTIONS (4)
  - Chromaturia [Unknown]
  - Headache [Unknown]
  - Illness [Unknown]
  - Abdominal discomfort [Unknown]
